FAERS Safety Report 5245863-5 (Version None)
Quarter: 2007Q1

REPORT INFORMATION
  Report Type: 
  Country: None (occurrence: None)
  Receive Date: 20070216
  Receipt Date: 20070202
  Transmission Date: 20070707
  Serious: Yes (Hospitalization)
  Sender: FDA-Public Use
  Company Number: 2006PV022824

PATIENT
  Age: 57 Year
  Sex: Male
  Weight: 136.0791 kg

DRUGS (16)
  1. BYETTA [Suspect]
     Indication: DIABETES MELLITUS NON-INSULIN-DEPENDENT
     Dosage: SEE IMAGE
     Route: 058
     Dates: start: 20060801, end: 20060901
  2. BYETTA [Suspect]
     Indication: DIABETES MELLITUS NON-INSULIN-DEPENDENT
     Dosage: SEE IMAGE
     Route: 058
     Dates: start: 20060901
  3. METFORMIN [Concomitant]
  4. COREG [Concomitant]
  5. VASOTEC [Concomitant]
  6. K-DUR 10 [Concomitant]
  7. LIPITOR [Concomitant]
  8. LASIX [Concomitant]
  9. FLOVENT [Concomitant]
  10. LANTUS [Concomitant]
  11. ISORDIL [Concomitant]
  12. DIGOXIN [Concomitant]
  13. ALLOPURINOL [Concomitant]
  14. ALDACTONE [Concomitant]
  15. COLCHICINE [Concomitant]
  16. ZAROXOLYN [Concomitant]

REACTIONS (5)
  - CELLULITIS [None]
  - GANGRENE [None]
  - HYPOTENSION [None]
  - LOCALISED INFECTION [None]
  - SEPSIS [None]
